FAERS Safety Report 13330208 (Version 2)
Quarter: 2017Q1

REPORT INFORMATION
  Report Type: Spontaneous
  Country: FR (occurrence: FR)
  Receive Date: 20170314
  Receipt Date: 20170321
  Transmission Date: 20170428
  Serious: Yes (Other)
  Sender: FDA-Public Use
  Company Number: FR-AUROBINDO-AUR-APL-2017-30578

PATIENT
  Age: 14 Year
  Sex: Female
  Weight: 42.5 kg

DRUGS (3)
  1. VORICONAZOLE. [Suspect]
     Active Substance: VORICONAZOLE
     Indication: BRONCHOPULMONARY ASPERGILLOSIS
     Dosage: 7.5 MG, TWO TIMES A DAY
     Route: 042
  2. VINCRISTINE [Interacting]
     Active Substance: VINCRISTINE
     Indication: ACUTE LYMPHOCYTIC LEUKAEMIA
     Route: 065
  3. VORICONAZOLE. [Suspect]
     Active Substance: VORICONAZOLE
     Indication: BRONCHOPULMONARY ASPERGILLOSIS
     Dosage: 7.5 MG/KG, UNK
     Route: 048

REACTIONS (4)
  - Drug level increased [Recovered/Resolved]
  - Encephalopathy [Recovered/Resolved]
  - Hallucinations, mixed [Recovered/Resolved]
  - Drug interaction [Recovered/Resolved]
